FAERS Safety Report 4822695-0 (Version None)
Quarter: 2005Q4

REPORT INFORMATION
  Report Type: 
  Country: None (occurrence: None)
  Receive Date: 20051104
  Receipt Date: 20051027
  Transmission Date: 20060501
  Serious: Yes (Life-Threatening, Hospitalization, Disabling)
  Sender: FDA-Public Use
  Company Number: 2005EU002436

PATIENT
  Age: 59 Year
  Sex: Male

DRUGS (7)
  1. FK506                           (TACROLIMUS ) [Suspect]
     Indication: LIVER TRANSPLANT
  2. CORTICOSTEROID NOS (CORTICOSTEROID NOS) [Suspect]
     Indication: LIVER TRANSPLANT
  3. PROPANOLOL (PROPANOLOL) [Concomitant]
  4. BEFACT FORTE (THIAMINE MONONITRATE) [Concomitant]
  5. ALLOPURINOL [Concomitant]
  6. OMEPRAZOLE [Concomitant]
  7. SPIRONOLACTONE [Concomitant]

REACTIONS (1)
  - CARDIAC ARREST [None]
